FAERS Safety Report 5250002-0 (Version None)
Quarter: 2007Q1

REPORT INFORMATION
  Report Type: 
  Country: None (occurrence: None)
  Receive Date: 20070228
  Receipt Date: 20060131
  Transmission Date: 20070707
  Serious: No
  Sender: FDA-Public Use
  Company Number: US-GLAXOSMITHKLINE-A0590276A

PATIENT
  Age: 24 Year
  Sex: Female

DRUGS (2)
  1. LAMICTAL [Suspect]
     Indication: BIPOLAR DISORDER
     Route: 048
     Dates: start: 20060101, end: 20060113
  2. LITHIUM CARBONATE [Concomitant]

REACTIONS (2)
  - BIPOLAR DISORDER [None]
  - RASH GENERALISED [None]
